FAERS Safety Report 7331565-8 (Version None)
Quarter: 2011Q1

REPORT INFORMATION
  Report Type: 
  Country: None (occurrence: None)
  Receive Date: 20110304
  Receipt Date: 20110224
  Transmission Date: 20110831
  Serious: Yes (Hospitalization, Other)
  Sender: FDA-Public Use
  Company Number: US-AMGEN-USASP2011008392

PATIENT
  Age: 49 Year
  Sex: Female
  Weight: 102.4 kg

DRUGS (1)
  1. ENBREL [Suspect]
     Indication: RHEUMATOID ARTHRITIS
     Dosage: 50 MG, QWK
     Route: 058
     Dates: start: 20100830, end: 20101220

REACTIONS (4)
  - PNEUMONIA [None]
  - DIARRHOEA [None]
  - SKIN LESION [None]
  - PALPITATIONS [None]
